FAERS Safety Report 10201422 (Version 1)
Quarter: 2014Q2

REPORT INFORMATION
  Report Type: Report from Study
  Country: DK (occurrence: DE)
  Receive Date: 20140528
  Receipt Date: 20140528
  Transmission Date: 20141212
  Serious: Yes (Hospitalization)
  Sender: FDA-Public Use
  Company Number: DE-FRI-1000067601

PATIENT
  Sex: Male

DRUGS (6)
  1. CITALOPRAM [Suspect]
     Dosage: 10 MG
     Route: 048
     Dates: start: 20130613, end: 20130616
  2. CITALOPRAM [Suspect]
     Dosage: 20 MG
     Route: 048
     Dates: start: 20130617, end: 20130617
  3. METFORMIN [Concomitant]
     Dosage: 1700 MG
     Route: 048
  4. PREDNISOLON [Concomitant]
     Dosage: 40 MG
     Route: 048
  5. NEBIVOLOL [Concomitant]
     Dosage: 2.5 MG
     Route: 048
  6. ACC [Concomitant]
     Dosage: 1800 MG
     Route: 048

REACTIONS (2)
  - Hyponatraemia [Recovered/Resolved]
  - Personality change [Recovered/Resolved]
